FAERS Safety Report 14428828 (Version 3)
Quarter: 2018Q3

REPORT INFORMATION
  Report Type: Report from Study
  Country: US (occurrence: US)
  Receive Date: 20180123
  Receipt Date: 20180719
  Transmission Date: 20181010
  Serious: Yes (Other)
  Sender: FDA-Public Use
  Company Number: US-AMGEN-USASL2017170307

PATIENT
  Age: 59 Year
  Sex: Male
  Weight: 88.44 kg

DRUGS (12)
  1. METFORMIN HYDROCHLORIDE. [Concomitant]
     Active Substance: METFORMIN HYDROCHLORIDE
     Dosage: 1000 MG, BID
     Route: 048
     Dates: start: 20150125
  2. ZETIA [Concomitant]
     Active Substance: EZETIMIBE
     Dosage: 10 MG, QD
     Route: 048
     Dates: start: 20150528
  3. NYSTATIN. [Concomitant]
     Active Substance: NYSTATIN
     Dosage: 100000/UNIT/GM 2?3 TIMES QD
     Route: 061
     Dates: start: 20140502
  4. METRONIDAZOLE. [Concomitant]
     Active Substance: METRONIDAZOLE
     Dosage: UNK
     Route: 061
     Dates: start: 20161129
  5. JARDIANCE [Concomitant]
     Active Substance: EMPAGLIFLOZIN
     Dosage: 10 MG, QD
     Route: 048
     Dates: start: 20160204
  6. NUVIGIL [Concomitant]
     Active Substance: ARMODAFINIL
     Dosage: 150 MG, UNK
     Route: 048
     Dates: start: 20140310
  7. ASPIRIN 81 [Concomitant]
     Active Substance: ASPIRIN
     Dosage: 1 TABLET, QD
  8. FISH OIL [Concomitant]
     Active Substance: FISH OIL
     Dosage: SUFFICIENT CAPSULES
  9. FLUOCINOLONE ACETONIDE. [Concomitant]
     Active Substance: FLUOCINOLONE ACETONIDE
     Dosage: UNK
     Dates: start: 20141204
  10. VALSARTAN. [Concomitant]
     Active Substance: VALSARTAN
     Dosage: 40 MG, QD
     Route: 048
     Dates: start: 20150528
  11. REPATHA [Suspect]
     Active Substance: EVOLOCUMAB
     Indication: HYPERLIPIDAEMIA
     Dosage: 140 MG/ML, Q2WK
     Route: 058
     Dates: start: 20161020, end: 201711
  12. ASHWAGANDHA [Concomitant]
     Active Substance: HERBALS
     Dosage: SUFFICIENT POWD

REACTIONS (3)
  - Myalgia [Recovered/Resolved]
  - Visual impairment [Unknown]
  - Impaired healing [Unknown]

NARRATIVE: CASE EVENT DATE: 2017
